FAERS Safety Report 22921425 (Version 2)
Quarter: 2024Q3

REPORT INFORMATION
  Report Type: Spontaneous
  Country: US (occurrence: None)
  Receive Date: 20230908
  Receipt Date: 20240906
  Transmission Date: 20241016
  Serious: No
  Sender: DOMPE FARMACEUTICI
  Company Number: US-FARMAPROD-202306-1810

PATIENT
  Sex: Female

DRUGS (16)
  1. OXERVATE [Suspect]
     Active Substance: CENEGERMIN-BKBJ
     Indication: Neurotrophic keratopathy
     Route: 047
     Dates: start: 20230607, end: 20230706
  2. OXERVATE [Suspect]
     Active Substance: CENEGERMIN-BKBJ
  3. ARTIFICIAL TEARS [Concomitant]
  4. GATIFLOXACIN [Concomitant]
     Active Substance: GATIFLOXACIN
  5. RESTASIS [Concomitant]
     Active Substance: CYCLOSPORINE
  6. VITAMINS [Concomitant]
     Active Substance: VITAMINS
     Dosage: GUMMIES
  7. VITAMIN D-400 [Concomitant]
  8. LUNESTA [Concomitant]
     Active Substance: ESZOPICLONE
  9. SYNTHROID [Concomitant]
     Active Substance: LEVOTHYROXINE SODIUM
  10. TRAZODONE HCL [Concomitant]
     Active Substance: TRAZODONE HYDROCHLORIDE
  11. PROTONIX [Concomitant]
     Active Substance: PANTOPRAZOLE SODIUM
  12. XANAX [Concomitant]
     Active Substance: ALPRAZOLAM
  13. ADDERALL [Concomitant]
     Active Substance: AMPHETAMINE ASPARTATE\AMPHETAMINE SULFATE\DEXTROAMPHETAMINE SACCHARATE\DEXTROAMPHETAMINE SULFATE
  14. VRAYLAR [Concomitant]
     Active Substance: CARIPRAZINE
  15. PROGRAF [Concomitant]
     Active Substance: TACROLIMUS
  16. URSODIOL [Concomitant]
     Active Substance: URSODIOL

REACTIONS (7)
  - Underdose [Unknown]
  - Intentional product misuse [Unknown]
  - Product dose omission issue [Recovered/Resolved]
  - Inappropriate schedule of product administration [Unknown]
  - Headache [Unknown]
  - Visual impairment [Unknown]
  - Photophobia [Unknown]
